FAERS Safety Report 21318565 (Version 2)
Quarter: 2022Q3

REPORT INFORMATION
  Report Type: Spontaneous
  Country: US (occurrence: US)
  Receive Date: 20220911
  Receipt Date: 20220923
  Transmission Date: 20221027
  Serious: No
  Sender: FDA-Public Use
  Company Number: US-SA-SAC20220829002374

PATIENT
  Age: 60 Year
  Sex: Female

DRUGS (12)
  1. DUPIXENT [Suspect]
     Active Substance: DUPILUMAB
     Indication: Dermatitis atopic
     Dosage: 300 MG/2ML , QOW
     Route: 058
     Dates: start: 20220816
  2. AMOXICILLIN [Concomitant]
     Active Substance: AMOXICILLIN
     Dosage: 500MG
  3. ENBREL [Concomitant]
     Active Substance: ETANERCEPT
  4. HUMIRA [Concomitant]
     Active Substance: ADALIMUMAB
  5. LISINOPRIL [Concomitant]
     Active Substance: LISINOPRIL
  6. PAROXETINE [Concomitant]
     Active Substance: PAROXETINE
     Dosage: 20MG
  7. CHLORTHALIDONE [Concomitant]
     Active Substance: CHLORTHALIDONE
  8. HYDROXYCHLOROQUINE SULFATE [Concomitant]
     Active Substance: HYDROXYCHLOROQUINE SULFATE
  9. LEVOTHYROXINE [Concomitant]
     Active Substance: LEVOTHYROXINE
  10. METHOCARBAMOL [Concomitant]
     Active Substance: METHOCARBAMOL
  11. NORTRIPTYLINE [Concomitant]
     Active Substance: NORTRIPTYLINE
  12. DEXAMETHASONE [Concomitant]
     Active Substance: DEXAMETHASONE

REACTIONS (4)
  - Root canal infection [Unknown]
  - Infection [Unknown]
  - Illness [Unknown]
  - Product dose omission issue [Unknown]
